FAERS Safety Report 4758551-6 (Version None)
Quarter: 2005Q3

REPORT INFORMATION
  Report Type: 
  Country: None (occurrence: None)
  Receive Date: 20050826
  Receipt Date: 20050810
  Transmission Date: 20060218
  Serious: Yes (Hospitalization)
  Sender: FDA-Public Use
  Company Number: DSA_26881_2005

PATIENT
  Age: 76 Year
  Sex: Male

DRUGS (7)
  1. DILTIAZEM [Suspect]
     Indication: ESSENTIAL HYPERTENSION
     Dosage: 120 MG Q DAY PO
     Route: 048
     Dates: end: 20050708
  2. INDERAL LA [Suspect]
     Indication: ESSENTIAL HYPERTENSION
     Dosage: 160 MG Q DAY PO
     Route: 048
     Dates: end: 20050708
  3. LASIX [Concomitant]
  4. CLUCOPHAGE [Concomitant]
  5. DIAMICRON [Concomitant]
  6. SINTROM [Concomitant]
  7. PRADIF [Concomitant]

REACTIONS (6)
  - ANGINA PECTORIS [None]
  - BLOOD POTASSIUM INCREASED [None]
  - BRADYCARDIA [None]
  - HYPERHIDROSIS [None]
  - HYPOTENSION [None]
  - MALAISE [None]
